FAERS Safety Report 6043501-5 (Version None)
Quarter: 2009Q1

REPORT INFORMATION
  Report Type: 
  Country: None (occurrence: None)
  Receive Date: 20090115
  Receipt Date: 20090115
  Transmission Date: 20090719
  Serious: Yes (Hospitalization, Other)
  Sender: FDA-Public Use
  Company Number: None

PATIENT
  Age: 32 Year
  Sex: Female
  Weight: 63.5036 kg

DRUGS (1)
  1. SINGULAIR [Suspect]
     Indication: ASTHMA
     Dosage: 10 UG/DAY ONE AT NIGHT PO
     Route: 048
     Dates: start: 20030701, end: 20080401

REACTIONS (10)
  - BLOOD PRESSURE INCREASED [None]
  - FLUID RETENTION [None]
  - IMPAIRED WORK ABILITY [None]
  - LACTATION DISORDER [None]
  - LOWER RESPIRATORY TRACT INFECTION [None]
  - MUSCLE FATIGUE [None]
  - OEDEMA [None]
  - PSYCHOTIC DISORDER [None]
  - SWELLING [None]
  - WEIGHT INCREASED [None]
